FAERS Safety Report 9278164 (Version 1)
Quarter: 2013Q2

REPORT INFORMATION
  Report Type: Report from Study
  Country: US (occurrence: US)
  Receive Date: 20130508
  Receipt Date: 20130508
  Transmission Date: 20140414
  Serious: Yes (Hospitalization)
  Sender: FDA-Public Use
  Company Number: PHHO2013US006007

PATIENT
  Age: 54 Year
  Sex: Male
  Weight: 83 kg

DRUGS (6)
  1. AFINITOR [Suspect]
     Indication: RENAL CELL CARCINOMA
     Dosage: 5 MG, QD
     Route: 048
     Dates: start: 20130220, end: 20130426
  2. ASPIRIN [Concomitant]
  3. FENOFIBRATE [Concomitant]
  4. HYDROCODONE [Concomitant]
  5. METFORMIN [Concomitant]
  6. TYLENOL [Concomitant]

REACTIONS (1)
  - Intestinal obstruction [Recovering/Resolving]
